FAERS Safety Report 12525705 (Version 3)
Quarter: 2018Q2

REPORT INFORMATION
  Report Type: Spontaneous
  Country: JP (occurrence: JP)
  Receive Date: 20160705
  Receipt Date: 20180422
  Transmission Date: 20180711
  Serious: Yes (Hospitalization, Other)
  Sender: FDA-Public Use
  Company Number: JP-APOTEX-2016AP009651

PATIENT
  Age: 49 Year
  Sex: Female

DRUGS (1)
  1. PAXIL [Suspect]
     Active Substance: PAROXETINE HYDROCHLORIDE
     Indication: DEPRESSION
     Dosage: 37.5 MG, UNK
     Route: 048

REACTIONS (12)
  - Product use issue [Unknown]
  - Tachycardia [Unknown]
  - Serotonin syndrome [Recovering/Resolving]
  - Hyperthermia [Recovering/Resolving]
  - General physical health deterioration [Unknown]
  - Angina pectoris [Unknown]
  - Renal failure [Unknown]
  - Aortic valve stenosis [Unknown]
  - Blood creatine phosphokinase increased [Recovering/Resolving]
  - Delayed recovery from anaesthesia [Recovering/Resolving]
  - Altered state of consciousness [Unknown]
  - Musculoskeletal stiffness [Recovering/Resolving]
